FAERS Safety Report 7298791 (Version 3)
Quarter: 2013Q1

REPORT INFORMATION
  Report Type: Report from Study
  Country: BE (occurrence: BE)
  Receive Date: 20100226
  Receipt Date: 20130321
  Transmission Date: 20140127
  Serious: Yes (Life-Threatening, Hospitalization)
  Sender: FDA-Public Use
  Company Number: PHHO2010BE03104

PATIENT
  Age: 67 Year
  Sex: Male
  Weight: 73 kg

DRUGS (2)
  1. EVEROLIMUS [Suspect]
     Indication: LIVER TRANSPLANT
     Dosage: 2 MG/DAY
     Route: 048
     Dates: start: 20080812
  2. TACROLIMUS [Suspect]
     Indication: LIVER TRANSPLANT
     Dosage: 2 MG/DAY
     Route: 048
     Dates: start: 20080716

REACTIONS (3)
  - Arteriosclerosis coronary artery [Recovering/Resolving]
  - Angina pectoris [Recovering/Resolving]
  - Concomitant disease progression [Recovering/Resolving]
